FAERS Safety Report 8354391 (Version 2)
Quarter: 2016Q1

REPORT INFORMATION
  Report Type: Spontaneous
  Country: US (occurrence: US)
  Receive Date: 20120125
  Receipt Date: 20160205
  Transmission Date: 20160526
  Serious: Yes (Hospitalization, Other)
  Sender: FDA-Public Use
  Company Number: US-ROCHE-783746

PATIENT
  Age: 20 Year
  Sex: Male
  Weight: 65.83 kg

DRUGS (1)
  1. ACCUTANE [Suspect]
     Active Substance: ISOTRETINOIN
     Indication: ACNE
     Route: 065
     Dates: start: 200001, end: 200006

REACTIONS (7)
  - Inflammatory bowel disease [Unknown]
  - Colitis ulcerative [Unknown]
  - Rectal abscess [Unknown]
  - Anal abscess [Unknown]
  - Crohn^s disease [Unknown]
  - Stress [Unknown]
  - Anal fistula [Unknown]

NARRATIVE: CASE EVENT DATE: 200304
